FAERS Safety Report 14986259 (Version 1)
Quarter: 2018Q2

REPORT INFORMATION
  Report Type: Spontaneous
  Country: US (occurrence: US)
  Receive Date: 20180607
  Receipt Date: 20180607
  Transmission Date: 20180711
  Serious: Yes (Other)
  Sender: FDA-Public Use
  Company Number: US-NEUROCRINE BIOSCIENCES INC.-2018NBI01643

PATIENT
  Age: 64 Year
  Sex: Female
  Weight: 53.12 kg

DRUGS (8)
  1. INGREZZA [Suspect]
     Active Substance: VALBENAZINE
     Indication: TARDIVE DYSKINESIA
     Route: 048
  2. CYMBALTA [Concomitant]
     Active Substance: DULOXETINE HYDROCHLORIDE
     Dosage: AT NIGHT
  3. CLONAZEPAM. [Concomitant]
     Active Substance: CLONAZEPAM
     Dosage: AT NIGHT
  4. MODAFINIL. [Concomitant]
     Active Substance: MODAFINIL
     Dosage: AT NIGHT
  5. SERTRALINE [Concomitant]
     Active Substance: SERTRALINE HYDROCHLORIDE
     Dosage: AT BEDTIME
  6. SYNTHROID [Concomitant]
     Active Substance: LEVOTHYROXINE SODIUM
  7. SEROQUEL [Concomitant]
     Active Substance: QUETIAPINE FUMARATE
     Dosage: 50 MG 1 TABLET IN THE MORNING, 200 MG 1 AT NIGHT
  8. INGREZZA [Suspect]
     Active Substance: VALBENAZINE
     Dosage: IN THE EVENING
     Route: 048

REACTIONS (8)
  - Laceration [Unknown]
  - Fall [Unknown]
  - Balance disorder [Not Recovered/Not Resolved]
  - Dizziness [Not Recovered/Not Resolved]
  - Tremor [Unknown]
  - Rib fracture [Not Recovered/Not Resolved]
  - Somnolence [Unknown]
  - Drug effect incomplete [None]

NARRATIVE: CASE EVENT DATE: 20180521
